FAERS Safety Report 8606253-8 (Version None)
Quarter: 2012Q3

REPORT INFORMATION
  Report Type: 
  Country: None (occurrence: None)
  Receive Date: 20120820
  Receipt Date: 20120816
  Transmission Date: 20120928
  Serious: Yes (Life-Threatening)
  Sender: FDA-Public Use
  Company Number: FR-ROCHE-1103151

PATIENT
  Age: 86 Year
  Sex: Female

DRUGS (18)
  1. LANSOYL [Concomitant]
  2. TRANSIPEG (FRANCE) [Concomitant]
  3. VENTOLIN [Concomitant]
  4. ACETAMINOPHEN [Concomitant]
  5. ACETAMINOPHEN [Suspect]
     Indication: PRODUCT USED FOR UNKNOWN INDICATION
     Route: 042
     Dates: start: 20120703, end: 20120703
  6. ALLOPURINOL [Concomitant]
  7. LORAZEPAM [Concomitant]
  8. POLARAMINE [Suspect]
     Indication: PRODUCT USED FOR UNKNOWN INDICATION
     Route: 042
     Dates: start: 20120703, end: 20120703
  9. ESOMEPRAZOLE SODIUM [Concomitant]
  10. ZOFRAN [Suspect]
     Indication: PRODUCT USED FOR UNKNOWN INDICATION
     Route: 042
     Dates: start: 20120703, end: 20120703
  11. SOLU-MEDROL [Suspect]
     Indication: PRODUCT USED FOR UNKNOWN INDICATION
     Route: 042
     Dates: start: 20120703, end: 20120703
  12. GAVISCON (FRANCE) [Concomitant]
  13. FLUTICASONE PROPIONATE/SALMETEROL [Concomitant]
     Dosage: 250/50 MG
  14. FRAGMIN [Concomitant]
  15. MABTHERA [Suspect]
     Indication: NON-HODGKIN'S LYMPHOMA
     Route: 042
     Dates: start: 20120703, end: 20120703
  16. FASTURTEC [Suspect]
     Indication: PRODUCT USED FOR UNKNOWN INDICATION
     Route: 042
     Dates: start: 20120703, end: 20120703
  17. CETIRIZINE [Concomitant]
  18. DOMPERIDONE [Concomitant]

REACTIONS (2)
  - RESPIRATORY DISTRESS [None]
  - HYPERSENSITIVITY [None]
